FAERS Safety Report 21103282 (Version 1)
Quarter: 2022Q3

REPORT INFORMATION
  Report Type: Spontaneous
  Country: JP (occurrence: JP)
  Receive Date: 20220720
  Receipt Date: 20220720
  Transmission Date: 20221027
  Serious: Yes (Other)
  Sender: FDA-Public Use
  Company Number: JP-TAIHO-TS220508_P_1

PATIENT
  Age: 74 Year
  Sex: Male

DRUGS (3)
  1. ABRAXANE [Suspect]
     Active Substance: PACLITAXEL
     Indication: Pancreatic carcinoma
     Dosage: 125 MG/M2/DAY, DETAILS NOT REPORTED, 2 CYCLES
     Route: 041
  2. TS-1 [Suspect]
     Active Substance: GIMERACIL\OTERACIL\TEGAFUR
     Indication: Pancreatic carcinoma
     Dosage: DETAILS NOT REPORTED, 2 CYCLES
     Route: 048
  3. GEMCITABINE HYDROCHLORIDE [Concomitant]
     Active Substance: GEMCITABINE HYDROCHLORIDE
     Indication: Pancreatic carcinoma
     Dosage: 1000 MG/M2/DAY, DETAILS NOT REPORTED, 2 CYCLES
     Route: 041

REACTIONS (1)
  - Pancreatic duct stenosis [Unknown]
